FAERS Safety Report 15407880 (Version 1)
Quarter: 2018Q3

REPORT INFORMATION
  Report Type: Spontaneous
  Country: DE (occurrence: DE)
  Receive Date: 20180920
  Receipt Date: 20180920
  Transmission Date: 20181010
  Serious: Yes (Hospitalization, Disabling, Other)
  Sender: FDA-Public Use
  Company Number: DE-JNJFOC-20180902284

PATIENT
  Age: 55 Year
  Sex: Female
  Weight: 61 kg

DRUGS (7)
  1. PARACETAMOL [Concomitant]
     Active Substance: ACETAMINOPHEN
     Indication: ANALGESIC THERAPY
     Route: 048
  2. INFLIXIMAB, RECOMBINANT [Suspect]
     Active Substance: INFLIXIMAB
     Indication: CROHN^S DISEASE
     Route: 042
  3. OXYGESIC [Concomitant]
     Active Substance: OXYCODONE
     Indication: ANALGESIC THERAPY
     Route: 048
  4. TIZANIDINE. [Concomitant]
     Active Substance: TIZANIDINE
     Indication: MUSCLE RELAXANT THERAPY
     Route: 048
  5. CEFTRIAXON [Concomitant]
     Active Substance: CEFTRIAXONE
     Indication: BORRELIA INFECTION
     Route: 042
  6. PIRITRAMIDE [Concomitant]
     Active Substance: PIRITRAMIDE
     Indication: ANALGESIC THERAPY
     Route: 042
  7. PANTOPRAZOL [Concomitant]
     Active Substance: PANTOPRAZOLE SODIUM
     Indication: PROPHYLAXIS AGAINST GASTROINTESTINAL ULCER
     Route: 048

REACTIONS (6)
  - Abscess [Unknown]
  - Product use issue [Unknown]
  - Myelitis transverse [Unknown]
  - Off label use [Unknown]
  - Intervertebral discitis [Recovering/Resolving]
  - Spinal cord disorder [Unknown]

NARRATIVE: CASE EVENT DATE: 201808
